FAERS Safety Report 17427108 (Version 1)
Quarter: 2020Q1

REPORT INFORMATION
  Report Type: Report from Study
  Country: US (occurrence: US)
  Receive Date: 20200218
  Receipt Date: 20200218
  Transmission Date: 20200409
  Serious: Yes (Other)
  Sender: FDA-Public Use
  Company Number: US-ASTRAZENECA-2020SE04111

PATIENT
  Age: 71 Year
  Sex: Male
  Weight: 78 kg

DRUGS (8)
  1. NEXIUM [Suspect]
     Active Substance: ESOMEPRAZOLE MAGNESIUM
     Indication: ABDOMINAL DISCOMFORT
     Dosage: 40.0MG UNKNOWN
     Route: 048
  2. LYNPARZA [Suspect]
     Active Substance: OLAPARIB
     Indication: LUNG NEOPLASM MALIGNANT
     Route: 048
     Dates: start: 201911
  3. LYNPARZA [Suspect]
     Active Substance: OLAPARIB
     Indication: LUNG NEOPLASM MALIGNANT
     Dosage: 300.0MG UNKNOWN
     Route: 048
     Dates: start: 20191201, end: 20200128
  4. CLOPIDOGREL [Concomitant]
     Active Substance: CLOPIDOGREL BISULFATE
     Indication: LIMB DISCOMFORT
  5. LYNPARZA [Suspect]
     Active Substance: OLAPARIB
     Indication: BRCA2 GENE MUTATION
     Dosage: 300.0MG UNKNOWN
     Route: 048
     Dates: start: 20191201, end: 20200128
  6. MORPHINE ER [Concomitant]
     Active Substance: MORPHINE
  7. LYNPARZA [Suspect]
     Active Substance: OLAPARIB
     Indication: BRCA2 GENE MUTATION
     Route: 048
     Dates: start: 201911
  8. MORPHINE ER [Concomitant]
     Active Substance: MORPHINE

REACTIONS (4)
  - Weight decreased [Unknown]
  - Product dose omission [Not Recovered/Not Resolved]
  - Product supply issue [Not Recovered/Not Resolved]
  - Neuropathy peripheral [Unknown]
